FAERS Safety Report 8386477-8 (Version None)
Quarter: 2012Q2

REPORT INFORMATION
  Report Type: 
  Country: None (occurrence: None)
  Receive Date: 20120523
  Receipt Date: 20120523
  Transmission Date: 20120825
  Serious: Yes (Hospitalization)
  Sender: FDA-Public Use
  Company Number: None

PATIENT
  Age: 56 Year
  Sex: Male
  Weight: 96.6162 kg

DRUGS (3)
  1. AZITHROMYCIN [Suspect]
     Indication: GASTROOESOPHAGEAL REFLUX DISEASE
     Dosage: 6 TABLETS OVER 5 DAYS PO
     Route: 048
     Dates: start: 20120502, end: 20120506
  2. AZITHROMYCIN [Suspect]
     Indication: NASOPHARYNGITIS
     Dosage: 6 TABLETS OVER 5 DAYS PO
     Route: 048
     Dates: start: 20120502, end: 20120506
  3. AZITHROMYCIN [Suspect]
     Indication: COUGH
     Dosage: 6 TABLETS OVER 5 DAYS PO
     Route: 048
     Dates: start: 20120502, end: 20120506

REACTIONS (5)
  - CONFUSIONAL STATE [None]
  - THROAT TIGHTNESS [None]
  - FOOD ALLERGY [None]
  - CHEST DISCOMFORT [None]
  - DYSPHAGIA [None]
